FAERS Safety Report 12434217 (Version 1)
Quarter: 2016Q2

REPORT INFORMATION
  Report Type: Spontaneous
  Country: GB (occurrence: GB)
  Receive Date: 20160603
  Receipt Date: 20160603
  Transmission Date: 20160815
  Serious: Yes (Hospitalization)
  Sender: FDA-Public Use
  Company Number: GB-SA-2016SA102599

PATIENT
  Age: 32 Year
  Sex: Female
  Weight: 67.1 kg

DRUGS (9)
  1. DEXAMETHASONE. [Concomitant]
     Active Substance: DEXAMETHASONE
  2. IBUPROFEN. [Concomitant]
     Active Substance: IBUPROFEN
  3. ORAMORPH [Concomitant]
     Active Substance: MORPHINE SULFATE
  4. DENOSUMAB [Concomitant]
     Active Substance: DENOSUMAB
  5. LANSOPRAZOLE. [Concomitant]
     Active Substance: LANSOPRAZOLE
  6. ADCAL [Concomitant]
     Active Substance: CALCIUM CARBONATE
  7. LEVOTHYROXINE. [Concomitant]
     Active Substance: LEVOTHYROXINE
  8. THYROGEN [Suspect]
     Active Substance: THYROTROPIN ALFA
     Indication: THYROID CANCER
     Route: 030
     Dates: start: 20160402, end: 20160403
  9. PARACETAMOL [Concomitant]
     Active Substance: ACETAMINOPHEN

REACTIONS (4)
  - Tumour flare [Recovered/Resolved with Sequelae]
  - Nausea [Unknown]
  - Swelling [Unknown]
  - Bone pain [Unknown]

NARRATIVE: CASE EVENT DATE: 20160403
